FAERS Safety Report 25608084 (Version 1)
Quarter: 2025Q3

REPORT INFORMATION
  Report Type: Report from Study
  Country: US (occurrence: US)
  Receive Date: 20250725
  Receipt Date: 20250725
  Transmission Date: 20251020
  Serious: Yes (Other)
  Sender: PFIZER
  Company Number: US-PFIZER INC-202500149085

PATIENT
  Age: 35 Year
  Sex: Male

DRUGS (2)
  1. BRAFTOVI [Suspect]
     Active Substance: ENCORAFENIB
     Dosage: TAKE 6 CAPSULES DAILY
  2. MEKTOVI [Suspect]
     Active Substance: BINIMETINIB
     Dosage: 15MG TAKE 3 TABLETS EVERY 12 HOURS

REACTIONS (4)
  - Lymphadenectomy [Unknown]
  - Peripheral nerve injury [Unknown]
  - Fatigue [Unknown]
  - Renal function test abnormal [Unknown]
